FAERS Safety Report 10787797 (Version 2)
Quarter: 2015Q1

REPORT INFORMATION
  Report Type: Spontaneous
  Country: US (occurrence: US)
  Receive Date: 20150212
  Receipt Date: 20150309
  Transmission Date: 20150721
  Serious: Yes (Other)
  Sender: FDA-Public Use
  Company Number: US-UCBSA-2015003625

PATIENT
  Age: 32 Year
  Sex: Male

DRUGS (4)
  1. KEPPRA [Suspect]
     Active Substance: LEVETIRACETAM
     Dosage: 1000MG/2 DAILY
     Dates: start: 20150107
  2. KEPPRA [Suspect]
     Active Substance: LEVETIRACETAM
     Dosage: 1500  MG A DAY
  3. VIMPAT [Suspect]
     Active Substance: LACOSAMIDE
     Indication: SEIZURE
     Dosage: UNK
     Dates: start: 201501
  4. KEPPRA [Suspect]
     Active Substance: LEVETIRACETAM
     Indication: SEIZURE
     Dosage: 1000MG/3 DAY
     Dates: start: 2012

REACTIONS (3)
  - Petit mal epilepsy [Not Recovered/Not Resolved]
  - Memory impairment [Unknown]
  - Multiple sclerosis [Unknown]

NARRATIVE: CASE EVENT DATE: 201308
